FAERS Safety Report 8401254-7 (Version None)
Quarter: 2012Q2

REPORT INFORMATION
  Report Type: 
  Country: None (occurrence: None)
  Receive Date: 20120530
  Receipt Date: 20120530
  Transmission Date: 20120825
  Serious: Yes (Hospitalization)
  Sender: FDA-Public Use
  Company Number: None

PATIENT
  Age: 73 Year
  Sex: Male
  Weight: 118.2 kg

DRUGS (2)
  1. WARFARIN SODIUM [Suspect]
     Indication: DEEP VEIN THROMBOSIS
     Dosage: MG PO  : ML BID SQ
     Route: 058
     Dates: start: 20120504
  2. WARFARIN SODIUM [Suspect]
     Indication: DEEP VEIN THROMBOSIS
     Dosage: MG PO  : ML BID SQ
     Route: 058
     Dates: start: 20120504, end: 20120510

REACTIONS (2)
  - HAEMORRHAGE [None]
  - INTRA-ABDOMINAL HAEMATOMA [None]
